FAERS Safety Report 7018027-2 (Version None)
Quarter: 2010Q3

REPORT INFORMATION
  Report Type: 
  Country: None (occurrence: None)
  Receive Date: 20100927
  Receipt Date: 20100927
  Transmission Date: 20110219
  Serious: Yes (Life-Threatening, Hospitalization)
  Sender: FDA-Public Use
  Company Number: None

PATIENT
  Sex: Female
  Weight: 60 kg

DRUGS (2)
  1. PENICILLIN [Suspect]
     Indication: DELIVERY
     Dosage: INTERVESICAL
     Route: 043
  2. PENICILLIN [Suspect]
     Indication: INFECTION PROPHYLAXIS
     Dosage: INTERVESICAL
     Route: 043

REACTIONS (4)
  - DRUG EXPOSURE DURING PREGNANCY [None]
  - DRUG HYPERSENSITIVITY [None]
  - DYSARTHRIA [None]
  - DYSPHAGIA [None]
